FAERS Safety Report 5136804-X (Version None)
Quarter: 2006Q4

REPORT INFORMATION
  Report Type: 
  Country: None (occurrence: None)
  Receive Date: 20061023
  Receipt Date: 20061009
  Transmission Date: 20070319
  Serious: Yes (Other)
  Sender: FDA-Public Use
  Company Number: 230980

PATIENT
  Age: 46 Year
  Sex: Male

DRUGS (4)
  1. MABTHERA (RITUXIMAB) CONC FOR SOLUTION FOR INFUSION [Suspect]
     Indication: CASTLEMAN'S DISEASE
     Dosage: 375 MG/M2, 1/WEEK
  2. EFAVIRENZ [Concomitant]
  3. DIDANOSINE [Concomitant]
  4. LAMIVUDINE [Concomitant]

REACTIONS (2)
  - CONDITION AGGRAVATED [None]
  - KAPOSI'S SARCOMA [None]
